FAERS Safety Report 11083484 (Version 1)
Quarter: 2015Q2

REPORT INFORMATION
  Report Type: Report from Study
  Country: US (occurrence: US)
  Receive Date: 20150501
  Receipt Date: 20150501
  Transmission Date: 20150821
  Serious: No
  Sender: FDA-Public Use
  Company Number: US-ABBVIE-14P-163-1299660-00

PATIENT
  Age: 48 Year
  Sex: Male
  Weight: 136.2 kg

DRUGS (6)
  1. EFFEXOR XR EXTENDED-RELEASE [Concomitant]
     Active Substance: VENLAFAXINE HYDROCHLORIDE
     Indication: PRODUCT USED FOR UNKNOWN INDICATION
  2. ANDROGEL [Suspect]
     Active Substance: TESTOSTERONE
     Indication: BLOOD TESTOSTERONE DECREASED
     Dosage: 2 PUMPS
     Route: 061
     Dates: start: 201406
  3. FIBER [Concomitant]
     Active Substance: PSYLLIUM HUSK
     Indication: NUTRITIONAL SUPPLEMENTATION
  4. ANDROGEL [Suspect]
     Active Substance: TESTOSTERONE
     Dosage: INSTRUCTED BY PA TO SKIP WED, DAILY BUT SKIP WEDNESDAYS
     Route: 061
     Dates: start: 2014
  5. ANDROGEL [Suspect]
     Active Substance: TESTOSTERONE
     Route: 061
     Dates: start: 201409, end: 201410
  6. ANDROGEL [Suspect]
     Active Substance: TESTOSTERONE
     Dosage: DECREASED BY PA TO EOD
     Route: 061
     Dates: start: 2014, end: 2014

REACTIONS (4)
  - Application site rash [Recovered/Resolved]
  - Blood testosterone decreased [Not Recovered/Not Resolved]
  - Application site acne [Recovered/Resolved]
  - Application site pain [Recovered/Resolved]

NARRATIVE: CASE EVENT DATE: 201409
